FAERS Safety Report 6756996-6 (Version None)
Quarter: 2010Q2

REPORT INFORMATION
  Report Type: 
  Country: None (occurrence: None)
  Receive Date: 20100604
  Receipt Date: 20100525
  Transmission Date: 20101027
  Serious: Yes (Hospitalization, Other)
  Sender: FDA-Public Use
  Company Number: US-ABBOTT-10P-163-0647296-00

PATIENT
  Sex: Male
  Weight: 95.34 kg

DRUGS (3)
  1. HUMIRA [Suspect]
     Indication: RHEUMATOID ARTHRITIS
     Route: 058
     Dates: end: 20100301
  2. FENTANYL [Suspect]
     Indication: PAIN
  3. MORPHINE SULFATE [Suspect]
     Indication: PAIN
     Route: 048

REACTIONS (12)
  - BACK PAIN [None]
  - BLOOD PRESSURE INCREASED [None]
  - DRUG DOSE OMISSION [None]
  - FALL [None]
  - FOOT FRACTURE [None]
  - HYPERSOMNIA [None]
  - HYPOAESTHESIA [None]
  - MOOD SWINGS [None]
  - NECK PAIN [None]
  - PAIN IN EXTREMITY [None]
  - SWELLING [None]
  - WITHDRAWAL SYNDROME [None]
